FAERS Safety Report 5042015-9 (Version None)
Quarter: 2006Q2

REPORT INFORMATION
  Report Type: 
  Country: None (occurrence: None)
  Receive Date: 20060627
  Receipt Date: 20060609
  Transmission Date: 20061013
  Serious: Yes (Hospitalization)
  Sender: FDA-Public Use
  Company Number: US-2006-008904

PATIENT
  Age: 62 Year
  Sex: Female
  Weight: 93 kg

DRUGS (5)
  1. BETASERON [Suspect]
     Indication: RELAPSING-REMITTING MULTIPLE SCLEROSIS
     Dosage: 8 MIU, EVERY 2D, SUBCUTANEOUS
     Route: 058
     Dates: start: 20040326
  2. PROZAC [Concomitant]
  3. VITAMIN B COMPLEX CAP [Concomitant]
  4. LORATADINE [Concomitant]
  5. TOPROL-XL [Concomitant]

REACTIONS (1)
  - CEREBROVASCULAR ACCIDENT [None]
